FAERS Safety Report 8200429-X (Version None)
Quarter: 2012Q1

REPORT INFORMATION
  Report Type: 
  Country: None (occurrence: None)
  Receive Date: 20120312
  Receipt Date: 20120302
  Transmission Date: 20120608
  Serious: Yes (Other)
  Sender: FDA-Public Use
  Company Number: GB-RB-035787-12

PATIENT
  Sex: Male

DRUGS (1)
  1. CLEARASIL ULTRA OVER NIGHT WASH [Suspect]
     Indication: PRODUCT USED FOR UNKNOWN INDICATION
     Route: 061

REACTIONS (3)
  - SWOLLEN TONGUE [None]
  - PHARYNGEAL OEDEMA [None]
  - DYSPNOEA [None]
